FAERS Safety Report 13090737 (Version 1)
Quarter: 2017Q1

REPORT INFORMATION
  Report Type: Spontaneous
  Country: US (occurrence: US)
  Receive Date: 20170106
  Receipt Date: 20170106
  Transmission Date: 20170428
  Serious: No
  Sender: FDA-Public Use
  Company Number: US-BIOGEN-2016BI00337124

PATIENT
  Sex: Female

DRUGS (1)
  1. PLEGRIDY [Suspect]
     Active Substance: PEGINTERFERON BETA-1A
     Indication: MULTIPLE SCLEROSIS
     Route: 065
     Dates: start: 20160410

REACTIONS (6)
  - Skin reaction [Not Recovered/Not Resolved]
  - Sneezing [Recovered/Resolved]
  - Injection site erythema [Not Recovered/Not Resolved]
  - Condition aggravated [Recovered/Resolved]
  - Food poisoning [Recovered/Resolved]
  - Injection site swelling [Not Recovered/Not Resolved]
